FAERS Safety Report 19502550 (Version 1)
Quarter: 2021Q3

REPORT INFORMATION
  Report Type: Spontaneous
  Country: US (occurrence: US)
  Receive Date: 20210707
  Receipt Date: 20210707
  Transmission Date: 20211014
  Serious: Yes (Other)
  Sender: FDA-Public Use
  Company Number: US-PFIZER INC-2021750080

PATIENT
  Age: 15 Month
  Sex: Female

DRUGS (2)
  1. METHYLPREDNISOLONE ACETATE. [Suspect]
     Active Substance: METHYLPREDNISOLONE ACETATE
     Indication: RASH MACULO-PAPULAR
     Dosage: 10 MG/KG (3 DAYS)
  2. TACROLIMUS. [Suspect]
     Active Substance: TACROLIMUS
     Indication: RASH MACULO-PAPULAR
     Dosage: UNK

REACTIONS (1)
  - Graft versus host disease in skin [Recovered/Resolved]
